FAERS Safety Report 5337170-7 (Version None)
Quarter: 2007Q2

REPORT INFORMATION
  Report Type: 
  Country: None (occurrence: None)
  Receive Date: 20070529
  Receipt Date: 20070517
  Transmission Date: 20071010
  Serious: Yes (Other)
  Sender: FDA-Public Use
  Company Number: US-PFIZER INC-2007040478

PATIENT
  Sex: Male
  Weight: 136.1 kg

DRUGS (11)
  1. CHANTIX [Suspect]
     Indication: SMOKING CESSATION THERAPY
     Route: 048
  2. FLUNISOLIDE [Concomitant]
  3. CLONAZEPAM [Concomitant]
     Indication: ANXIETY
     Route: 048
  4. SIMVASTATIN [Concomitant]
     Route: 048
  5. LISINOPRIL [Concomitant]
     Route: 048
  6. METOPROLOL SUCCINATE [Concomitant]
     Route: 048
  7. OMEPRAZOLE [Concomitant]
     Route: 048
  8. FUROSEMIDE [Concomitant]
     Route: 048
  9. ACETAMINOPHEN AND CODEINE PHOSPHATE [Concomitant]
     Route: 048
  10. VITAMINS [Concomitant]
     Route: 048
  11. ACETYLSALICYLIC ACID SRT [Concomitant]
     Dosage: DAILY DOSE:81MG

REACTIONS (3)
  - ANXIETY [None]
  - ILL-DEFINED DISORDER [None]
  - SLEEP DISORDER [None]
